FAERS Safety Report 6447067-7 (Version None)
Quarter: 2009Q4

REPORT INFORMATION
  Report Type: 
  Country: None (occurrence: None)
  Receive Date: 20091110
  Receipt Date: 20090817
  Transmission Date: 20100525
  Serious: No
  Sender: FDA-Public Use
  Company Number: 1000007620

PATIENT
  Sex: Male

DRUGS (2)
  1. SAVELLA [Suspect]
     Dosage: 12.5 MG (12.5 MG, 1 IN 1 D), ORAL
     Route: 048
  2. SAVELLA [Suspect]
     Dosage: 25MG (2 IN 1 D)
     Route: 048

REACTIONS (1)
  - DRUG INEFFECTIVE [None]
